FAERS Safety Report 4652232-5 (Version None)
Quarter: 2005Q2

REPORT INFORMATION
  Report Type: 
  Country: None (occurrence: None)
  Receive Date: 20050504
  Receipt Date: 20050203
  Transmission Date: 20051028
  Serious: Yes (Other)
  Sender: FDA-Public Use
  Company Number: US-AMGEN-US111346

PATIENT
  Sex: Male
  Weight: 90.3 kg

DRUGS (11)
  1. EPOGEN [Suspect]
     Indication: DIALYSIS
     Dates: start: 20020716
  2. LISINOPRIL [Suspect]
  3. LABETALOL [Concomitant]
  4. NIFEDIPINE [Concomitant]
  5. NEPHRO-CAPS [Concomitant]
  6. PHOSLO [Concomitant]
  7. GLYBURIDE [Concomitant]
  8. COZAAR [Concomitant]
  9. CLONIDINE [Concomitant]
  10. VITAMIN C [Concomitant]
  11. CALCIUM GLUCONATE [Concomitant]

REACTIONS (4)
  - BARRETT'S OESOPHAGUS [None]
  - GOITRE [None]
  - RECTAL HAEMORRHAGE [None]
  - THERAPEUTIC RESPONSE DECREASED [None]
